FAERS Safety Report 9499097 (Version 1)
Quarter: 2013Q3

REPORT INFORMATION
  Report Type: Spontaneous
  Country: GB (occurrence: GB)
  Receive Date: 20130904
  Receipt Date: 20130904
  Transmission Date: 20140515
  Serious: Yes (Disabling, Other)
  Sender: FDA-Public Use
  Company Number: GB-WATSON-2013-15598

PATIENT
  Age: 51 Year
  Sex: Female

DRUGS (4)
  1. METRONIDAZOLE (UNKNOWN) [Suspect]
     Indication: BREAST ABSCESS
     Dosage: 400 MG, TID
     Route: 048
     Dates: start: 20130723, end: 20130802
  2. CLINDAMYCIN [Suspect]
     Indication: BREAST ABSCESS
     Dosage: UNK
     Route: 048
     Dates: start: 20130716, end: 20130730
  3. TRAMADOL HYDROCHLORIDE [Concomitant]
     Indication: PRODUCT USED FOR UNKNOWN INDICATION
     Route: 065
  4. PARACETAMOL [Concomitant]
     Indication: PRODUCT USED FOR UNKNOWN INDICATION
     Route: 065

REACTIONS (8)
  - Generalised erythema [Unknown]
  - Rash pruritic [Unknown]
  - Burning sensation [Unknown]
  - Rash macular [Unknown]
  - Eyelid oedema [Unknown]
  - Oedema mouth [Unknown]
  - Pruritus generalised [Unknown]
  - Throat irritation [Unknown]
